FAERS Safety Report 8474863-7 (Version None)
Quarter: 2012Q2

REPORT INFORMATION
  Report Type: 
  Country: None (occurrence: None)
  Receive Date: 20120628
  Receipt Date: 20120621
  Transmission Date: 20120825
  Serious: Yes (Hospitalization)
  Sender: FDA-Public Use
  Company Number: GB-PFIZER INC-2012149366

PATIENT
  Age: 88 Year
  Sex: Male
  Weight: 57 kg

DRUGS (5)
  1. GABAPENTIN [Suspect]
     Indication: SCIATICA
     Route: 048
     Dates: end: 20120523
  2. CALCICHEW-D3 [Concomitant]
     Route: 048
  3. SIMVASTATIN [Concomitant]
     Route: 048
     Dates: start: 20110523
  4. CLOPIDOGREL [Concomitant]
     Route: 048
  5. ALENDRONIC ACID [Concomitant]
     Route: 048

REACTIONS (2)
  - LIVER FUNCTION TEST ABNORMAL [None]
  - JAUNDICE CHOLESTATIC [None]
